FAERS Safety Report 4299068-5 (Version None)
Quarter: 2004Q1

REPORT INFORMATION
  Report Type: 
  Country: None (occurrence: None)
  Receive Date: 20040217
  Receipt Date: 20040127
  Transmission Date: 20041129
  Serious: Yes (Death, Life-Threatening, Hospitalization)
  Sender: FDA-Public Use
  Company Number: 7271

PATIENT
  Age: 75 Year
  Sex: Female

DRUGS (10)
  1. METHOTREXATE [Suspect]
     Indication: RHEUMATOID ARTHRITIS
     Dosage: 10 MG WEEKLY, PO
     Route: 048
     Dates: start: 20010101, end: 20020101
  2. LEFLUNOMIDE [Suspect]
     Indication: RHEUMATOID ARTHRITIS
     Dosage: 20 MG, PO
     Route: 048
     Dates: start: 20020318, end: 20021001
  3. PREDNISOLONE [Suspect]
     Dosage: 5 MG,
     Dates: start: 20010101, end: 20021001
  4. MIXTARD HUMAN 70/30 [Concomitant]
  5. FOLIC ACID [Concomitant]
  6. PERINDOPRIL ERBUMINE [Concomitant]
  7. GEMFIBROZIL [Concomitant]
  8. FRUSEMIDE [Concomitant]
  9. SALBUTAMOL SULFATE [Concomitant]
  10. ASPIRIN [Concomitant]

REACTIONS (3)
  - IMMUNE SYSTEM DISORDER [None]
  - MULTI-ORGAN FAILURE [None]
  - PNEUMOCYSTIS CARINII PNEUMONIA [None]
